FAERS Safety Report 16655950 (Version 2)
Quarter: 2019Q3

REPORT INFORMATION
  Report Type: Spontaneous
  Country: IT (occurrence: IT)
  Receive Date: 20190801
  Receipt Date: 20190925
  Transmission Date: 20191004
  Serious: Yes (Other)
  Sender: FDA-Public Use
  Company Number: IT-TEVA-2019-IT-1085791

PATIENT
  Age: 73 Year
  Sex: Female

DRUGS (6)
  1. EUTIROX [Concomitant]
     Active Substance: LEVOTHYROXINE SODIUM
  2. MEMANTINE HYDROCHLORIDE. [Suspect]
     Active Substance: MEMANTINE HYDROCHLORIDE
     Indication: DEMENTIA ALZHEIMER^S TYPE
     Dosage: 5 MG
     Route: 048
     Dates: start: 20190204
  3. CLODY [Concomitant]
     Active Substance: CLODRONATE DISODIUM
  4. DIBASE [Concomitant]
     Active Substance: CHOLECALCIFEROL
  5. CARDIOASPIRIN [Concomitant]
     Active Substance: ASPIRIN
  6. OLPREZIDE [Concomitant]
     Active Substance: HYDROCHLOROTHIAZIDE\OLMESARTAN MEDOXOMIL

REACTIONS (3)
  - Dizziness [Recovering/Resolving]
  - Syncope [Recovering/Resolving]
  - Corneal opacity [Recovering/Resolving]

NARRATIVE: CASE EVENT DATE: 20190208
